FAERS Safety Report 7361970 (Version 7)
Quarter: 2012Q4

REPORT INFORMATION
  Report Type: Report from Study
  Country: BE (occurrence: BE)
  Receive Date: 20100421
  Receipt Date: 20121015
  Transmission Date: 20130627
  Serious: Yes (Death, Life-Threatening, Other)
  Sender: FDA-Public Use
  Company Number: BE-CELGENEUS-013-C5013-10041197

PATIENT
  Age: 79 Year
  Sex: Female
  Weight: 47.3 kg

DRUGS (6)
  1. CC-5013 [Suspect]
     Indication: MULTIPLE MYELOMA
     Dosage: 2.5 Milligram
     Route: 048
     Dates: start: 20070822, end: 20100330
  2. PREDNISONE [Suspect]
     Indication: MULTIPLE MYELOMA
     Route: 065
     Dates: start: 20070822
  3. MELPHALAN [Suspect]
     Indication: MULTIPLE MYELOMA
     Route: 065
     Dates: start: 20070822, end: 20080413
  4. NEUPOGEN [Concomitant]
     Indication: NEUTROPENIA
     Dosage: 300 Milligram
     Route: 058
     Dates: start: 20100414
  5. BLOOD [Concomitant]
     Indication: DRUG USE FOR UNKNOWN INDICATION
     Route: 041
  6. PLATELET [Concomitant]
     Indication: DRUG USE FOR UNKNOWN INDICATION
     Route: 041

REACTIONS (1)
  - Acute myeloid leukaemia [Fatal]
